FAERS Safety Report 6354624-5 (Version None)
Quarter: 2009Q3

REPORT INFORMATION
  Report Type: 
  Country: None (occurrence: None)
  Receive Date: 20090914
  Receipt Date: 20090901
  Transmission Date: 20100115
  Serious: Yes (Other)
  Sender: FDA-Public Use
  Company Number: US-AMGEN-US362635

PATIENT
  Age: 51 Year
  Sex: Female
  Weight: 58.2 kg

DRUGS (17)
  1. NEULASTA [Suspect]
     Indication: CHEMOTHERAPY
     Route: 058
     Dates: start: 20080414, end: 20080626
  2. VELCADE [Suspect]
     Route: 042
     Dates: start: 20080414, end: 20080619
  3. RITUXIMAB [Suspect]
     Route: 042
     Dates: start: 20080414, end: 20090619
  4. CYCLOPHOSPHAMIDE [Suspect]
     Route: 042
     Dates: start: 20080414, end: 20080625
  5. DOXORUBICIN HCL [Suspect]
     Route: 042
     Dates: start: 20080414, end: 20080625
  6. VINCRISTINE [Suspect]
     Route: 042
     Dates: start: 20080414, end: 20080624
  7. DEXAMETHASONE [Suspect]
     Dates: start: 20080414, end: 20080626
  8. DILAUDID [Concomitant]
  9. DIPHENHYDRAMINE HCL [Concomitant]
  10. CYMBALTA [Concomitant]
  11. HYDROCODONE [Concomitant]
  12. LEVOFLOXACIN [Concomitant]
  13. MODAFINIL [Concomitant]
  14. TIZANIDINE HCL [Concomitant]
  15. ACYCLOVIR [Concomitant]
  16. CIPROFLAXACIN [Concomitant]
  17. COMPAZINE [Concomitant]

REACTIONS (8)
  - CYSTITIS [None]
  - DECREASED APPETITE [None]
  - HAEMATOCRIT DECREASED [None]
  - INSOMNIA [None]
  - LYMPHOPENIA [None]
  - OPPORTUNISTIC INFECTION [None]
  - PROTEINURIA [None]
  - STOMATITIS [None]
